FAERS Safety Report 23339447 (Version 1)
Quarter: 2023Q4

REPORT INFORMATION
  Report Type: Spontaneous
  Country: US (occurrence: None)
  Receive Date: 20231226
  Receipt Date: 20231226
  Transmission Date: 20240110
  Serious: No
  Sender: FDA-Public Use
  Company Number: None

PATIENT
  Age: 59 Year
  Sex: Female
  Weight: 54 kg

DRUGS (5)
  1. PAXLOVID [Suspect]
     Active Substance: NIRMATRELVIR\RITONAVIR
     Indication: COVID-19
     Dosage: OTHER QUANTITY : 1 DOSE PACK OF 3 TAB;?FREQUENCY : TWICE A DAY;?
     Route: 048
     Dates: start: 20231220, end: 20231220
  2. HERBALS\TURMERIC [Concomitant]
     Active Substance: HERBALS\TURMERIC
  3. BLACK COHOSH [Concomitant]
     Active Substance: BLACK COHOSH
  4. acidopholis [Concomitant]
  5. SUDAFED [Concomitant]
     Active Substance: PSEUDOEPHEDRINE HYDROCHLORIDE

REACTIONS (9)
  - Adverse reaction [None]
  - Aphonia [None]
  - Hypertension [None]
  - Headache [None]
  - Nausea [None]
  - Asthenia [None]
  - Decreased appetite [None]
  - Vomiting [None]
  - Feeding disorder [None]

NARRATIVE: CASE EVENT DATE: 20231220
